FAERS Safety Report 5095469-6 (Version None)
Quarter: 2006Q3

REPORT INFORMATION
  Report Type: 
  Country: None (occurrence: None)
  Receive Date: 20060901
  Receipt Date: 20060901
  Transmission Date: 20061208
  Serious: Yes (Death)
  Sender: FDA-Public Use
  Company Number: None

PATIENT
  Age: 81 Year
  Sex: Male

DRUGS (3)
  1. METHADONE HCL [Suspect]
     Indication: NEUROPATHY
     Dosage: 10 MG TID PO
     Route: 048
     Dates: start: 20060808
  2. METHADONE HCL [Suspect]
     Indication: OSTEOARTHRITIS
     Dosage: 10 MG TID PO
     Route: 048
     Dates: start: 20060808
  3. METHADONE HCL [Suspect]
     Indication: POST HERPETIC NEURALGIA
     Dosage: 10 MG TID PO
     Route: 048
     Dates: start: 20060808

REACTIONS (1)
  - RESPIRATORY ARREST [None]
